FAERS Safety Report 6663706-X (Version None)
Quarter: 2010Q1

REPORT INFORMATION
  Report Type: 
  Country: None (occurrence: None)
  Receive Date: 20100331
  Receipt Date: 20100331
  Transmission Date: 20100710
  Serious: Yes (Hospitalization)
  Sender: FDA-Public Use
  Company Number: None

PATIENT
  Age: 61 Year
  Sex: Male

DRUGS (1)
  1. AVELOX [Suspect]
     Dosage: 400MG DAILY ORAL (PO)
     Route: 048
     Dates: start: 20100315, end: 20100315

REACTIONS (2)
  - CONFUSIONAL STATE [None]
  - HALLUCINATION [None]
